FAERS Safety Report 21358935 (Version 2)
Quarter: 2023Q1

REPORT INFORMATION
  Report Type: Report from Study
  Country: US (occurrence: US)
  Receive Date: 20220921
  Receipt Date: 20230320
  Transmission Date: 20230418
  Serious: Yes (Hospitalization, Other)
  Sender: FDA-Public Use
  Company Number: US-KOREA IPSEN Pharma-2021-29232

PATIENT
  Age: 61 Year
  Sex: Female

DRUGS (2)
  1. SOMATULINE DEPOT [Suspect]
     Active Substance: LANREOTIDE ACETATE
     Indication: Carcinoid tumour
     Dosage: 120MG/ 0.5ML
     Route: 058
     Dates: start: 2012
  2. SOMATULINE DEPOT [Suspect]
     Active Substance: LANREOTIDE ACETATE
     Dosage: 120MG/0.5ML
     Route: 058
     Dates: start: 201801

REACTIONS (20)
  - Tumour ablation [Unknown]
  - Tumour ablation [Unknown]
  - Tumour ablation [Unknown]
  - Post procedural complication [Recovered/Resolved]
  - Pneumonia [Recovered/Resolved]
  - Radiotherapy [Not Recovered/Not Resolved]
  - Injection site mass [Not Recovered/Not Resolved]
  - Oedema [Recovering/Resolving]
  - Weight decreased [Recovering/Resolving]
  - Thyroid disorder [Recovered/Resolved]
  - Arthritis [Recovering/Resolving]
  - Pain [Recovering/Resolving]
  - Vomiting [Recovering/Resolving]
  - Injection site mass [Recovering/Resolving]
  - Nausea [Recovering/Resolving]
  - Weight decreased [Recovering/Resolving]
  - Blood cholesterol abnormal [Recovered/Resolved]
  - Blood pressure abnormal [Recovering/Resolving]
  - Glycosylated haemoglobin increased [Recovering/Resolving]
  - Product dose omission issue [Unknown]

NARRATIVE: CASE EVENT DATE: 20140101
